FAERS Safety Report 24316406 (Version 2)
Quarter: 2024Q4

REPORT INFORMATION
  Report Type: Report from Study
  Country: CA (occurrence: CA)
  Receive Date: 20240913
  Receipt Date: 20241018
  Transmission Date: 20250115
  Serious: Yes (Other)
  Sender: MYLAN
  Company Number: CA-MYLANLABS-2024M1069852

PATIENT
  Sex: Male
  Weight: 66.2 kg

DRUGS (10)
  1. CLOZAPINE [Suspect]
     Active Substance: CLOZAPINE
     Indication: Schizophrenia
     Dosage: 100 MILLIGRAM, QID (BEEN ON 100 GM FOR 10 DAYS FOR DURATION OF 3 WEEK))
     Route: 048
     Dates: start: 20240604, end: 20240627
  2. ACETAMINOPHEN [Concomitant]
     Active Substance: ACETAMINOPHEN
     Dosage: 325 MILLIGRAM, QID
     Route: 048
  3. LACTULOSE [Concomitant]
     Active Substance: LACTULOSE
     Dosage: 20 GRAM, QD (DAILY)
     Route: 048
  4. PANTOPRAZOLE [Concomitant]
     Active Substance: PANTOPRAZOLE
     Dosage: 40 MILLIGRAM, QD (DAILY)
     Route: 048
  5. VITAMIN D3 [Concomitant]
     Active Substance: CHOLECALCIFEROL
     Dosage: 50000 INTERNATIONAL UNIT, Q21D
     Route: 065
  6. HALDOL [Concomitant]
     Active Substance: HALOPERIDOL
     Dosage: 75 GRAM (IN EVERY 4 WEEKS)
     Route: 030
  7. HALDOL [Concomitant]
     Active Substance: HALOPERIDOL
     Dosage: 100 GRAM (IN EVERY 4 WEEKS)
     Route: 030
  8. VALPROIC ACID [Concomitant]
     Active Substance: VALPROIC ACID
     Dosage: 1250 MILLIGRAM, QID
     Route: 048
  9. SENNA [Concomitant]
     Active Substance: SENNA LEAF\SENNOSIDES\SENNOSIDES A AND B
     Dosage: 17.2 MILLIGRAM, BID
     Route: 048
  10. EPIVAL [Concomitant]
     Active Substance: DIVALPROEX SODIUM
     Dosage: 1250 GRAM, QID
     Route: 048

REACTIONS (4)
  - Myocarditis [Unknown]
  - C-reactive protein increased [Recovered/Resolved]
  - Troponin increased [Recovered/Resolved]
  - Pyrexia [Unknown]
